FAERS Safety Report 10679814 (Version 1)
Quarter: 2014Q4

REPORT INFORMATION
  Report Type: Spontaneous
  Country: DE (occurrence: DE)
  Receive Date: 20141229
  Receipt Date: 20141229
  Transmission Date: 20150529
  Serious: Yes (Hospitalization)
  Sender: FDA-Public Use
  Company Number: DE-ELI_LILLY_AND_COMPANY-DE201412007558

PATIENT
  Age: 53 Year

DRUGS (5)
  1. CITALOPRAM [Concomitant]
     Active Substance: CITALOPRAM HYDROBROMIDE
     Dosage: UNK, UNKNOWN
     Route: 048
     Dates: start: 201211, end: 20121223
  2. ACETYLSALICYLSAEURE [Concomitant]
     Active Substance: ASPIRIN
     Dosage: UNK, UNKNOWN
     Route: 048
  3. CYMBALTA [Suspect]
     Active Substance: DULOXETINE HYDROCHLORIDE
     Indication: PRODUCT USED FOR UNKNOWN INDICATION
     Dosage: 90 MG, QD
     Route: 048
     Dates: end: 20130131
  4. REMERGIL [Interacting]
     Active Substance: MIRTAZAPINE
     Indication: PRODUCT USED FOR UNKNOWN INDICATION
     Dosage: 45 MG, QD
     Route: 048
     Dates: end: 20130131
  5. LYRICA [Concomitant]
     Active Substance: PREGABALIN
     Dosage: UNK, UNKNOWN
     Route: 048
     Dates: end: 20130127

REACTIONS (4)
  - Gamma-glutamyltransferase increased [Recovering/Resolving]
  - Aspartate aminotransferase increased [Recovering/Resolving]
  - Drug interaction [Recovered/Resolved]
  - Alanine aminotransferase increased [Recovering/Resolving]
